FAERS Safety Report 7960141-9 (Version None)
Quarter: 2011Q4

REPORT INFORMATION
  Report Type: 
  Country: None (occurrence: None)
  Receive Date: 20111206
  Receipt Date: 20111130
  Transmission Date: 20120403
  Serious: Yes (Other)
  Sender: FDA-Public Use
  Company Number: PHEH2011US010519

PATIENT
  Sex: Female

DRUGS (7)
  1. NUVIGIL [Suspect]
     Dosage: 250 MG, UNK
     Dates: start: 20110623
  2. LITHIUM [Concomitant]
     Indication: BIPOLAR DISORDER
     Dosage: UNK UKN, UNK
  3. XANAX [Concomitant]
     Indication: BIPOLAR DISORDER
     Dosage: UNK UKN, UNK
  4. TRIAZOLAM [Concomitant]
     Indication: SLEEP DISORDER
     Dosage: 0.25 MG, UNK
  5. LIPITOR [Concomitant]
     Dosage: UNK UKN, UNK
  6. ASPIRIN [Concomitant]
     Dosage: 325 MG, UNK
  7. GILENYA [Suspect]
     Dosage: 0.5 MG, QD
     Route: 048

REACTIONS (9)
  - IRRITABLE BOWEL SYNDROME [None]
  - ABDOMINAL DISCOMFORT [None]
  - INSOMNIA [None]
  - APHAGIA [None]
  - WEIGHT DECREASED [None]
  - ASTHENIA [None]
  - BOWEL MOVEMENT IRREGULARITY [None]
  - MULTIPLE SCLEROSIS [None]
  - NEUROPATHY PERIPHERAL [None]
